FAERS Safety Report 7935581-4 (Version None)
Quarter: 2011Q4

REPORT INFORMATION
  Report Type: 
  Country: None (occurrence: None)
  Receive Date: 20111123
  Receipt Date: 20111117
  Transmission Date: 20120403
  Serious: Yes (Hospitalization)
  Sender: FDA-Public Use
  Company Number: US-BIOGENIDEC-2011BI030196

PATIENT
  Age: 48 Year
  Sex: Female

DRUGS (3)
  1. TYSABRI [Suspect]
     Indication: MULTIPLE SCLEROSIS
     Route: 042
     Dates: start: 20071212, end: 20081110
  2. TYSABRI [Suspect]
     Route: 042
     Dates: start: 20110719
  3. TYSABRI [Suspect]
     Route: 042
     Dates: start: 20090213, end: 20110126

REACTIONS (3)
  - URINARY TRACT INFECTION [None]
  - HYPERGLYCAEMIA [None]
  - MULTIPLE SCLEROSIS RELAPSE [None]
